FAERS Safety Report 6020356-6 (Version None)
Quarter: 2008Q4

REPORT INFORMATION
  Report Type: 
  Country: None (occurrence: None)
  Receive Date: 20081226
  Receipt Date: 20081216
  Transmission Date: 20090506
  Serious: Yes (Death, Hospitalization, Other)
  Sender: FDA-Public Use
  Company Number: IE-ABBOTT-08P-229-0485055-00

PATIENT
  Age: 69 Year
  Sex: Female

DRUGS (6)
  1. KLARICID TABLETS [Suspect]
     Indication: RESPIRATORY TRACT INFECTION
     Dates: start: 20061121, end: 20061123
  2. ERYTHROMYCIN [Interacting]
     Indication: RESPIRATORY TRACT INFECTION
     Dates: start: 20061113
  3. WARFARIN [Interacting]
     Indication: ANTICOAGULANT THERAPY
     Dates: start: 20030101
  4. WARFARIN [Interacting]
     Indication: HEART RATE IRREGULAR
  5. WARFARIN [Interacting]
     Indication: CEREBROVASCULAR ACCIDENT PROPHYLAXIS
  6. AUGMENTIN '125' [Interacting]
     Indication: RESPIRATORY TRACT INFECTION
     Dosage: FOR ONE WEEK
     Dates: start: 20061013

REACTIONS (6)
  - CEREBRAL HAEMORRHAGE [None]
  - CIRCULATORY COLLAPSE [None]
  - DRUG INTERACTION [None]
  - GENERAL PHYSICAL HEALTH DETERIORATION [None]
  - INTERNATIONAL NORMALISED RATIO INCREASED [None]
  - MALAISE [None]
